FAERS Safety Report 10035126 (Version 1)
Quarter: 2014Q1

REPORT INFORMATION
  Report Type: Spontaneous
  Country: US (occurrence: US)
  Receive Date: 20140325
  Receipt Date: 20140325
  Transmission Date: 20141002
  Serious: Yes (Hospitalization)
  Sender: FDA-Public Use
  Company Number: US-BAXTER-2014BAX014234

PATIENT
  Sex: Female

DRUGS (2)
  1. DIANEAL PD2 [Suspect]
     Indication: RENAL FAILURE CHRONIC
     Route: 033
     Dates: start: 201311
  2. DIANEAL PD2 [Suspect]
     Indication: RENAL FAILURE CHRONIC
     Route: 033
     Dates: start: 201311

REACTIONS (2)
  - Device related infection [Recovered/Resolved]
  - Gastric infection [Recovered/Resolved]
